FAERS Safety Report 6580378-3 (Version None)
Quarter: 2010Q1

REPORT INFORMATION
  Report Type: 
  Country: None (occurrence: None)
  Receive Date: 20100212
  Receipt Date: 20100201
  Transmission Date: 20100710
  Serious: Yes (Other)
  Sender: FDA-Public Use
  Company Number: PHEH2007US13367

PATIENT
  Sex: Male
  Weight: 101.59 kg

DRUGS (28)
  1. ZOMETA [Suspect]
     Indication: MULTIPLE MYELOMA
     Dosage: 4 MG, QW4
     Route: 042
     Dates: end: 20060801
  2. THALIDOMIDE [Concomitant]
     Dosage: 200 MG, QD
     Route: 048
  3. ALLOPURINOL [Concomitant]
     Dosage: 100 MG, QD
     Route: 048
  4. CELEBREX [Concomitant]
     Dosage: 200 MG, UNK
     Route: 048
  5. ALLEGRA [Concomitant]
     Dosage: 60 MG, BID
  6. INTERFERON [Concomitant]
     Indication: MULTIPLE MYELOMA
     Dosage: 4 MILLION UNITS M-W-F
  7. ACYCLOVIR [Concomitant]
     Dosage: 800 MG, BID
  8. DYAZIDE [Concomitant]
     Dosage: 37.5 MG, QD
  9. HYDROCHLOROTHIAZIDE [Concomitant]
     Dosage: 25 MG, QD
  10. GEMFIBROZIL [Concomitant]
     Dosage: 600 MG, BID
  11. CHEMOTHERAPEUTICS NOS [Concomitant]
  12. RADIATION THERAPY [Concomitant]
  13. COZAAR [Concomitant]
  14. PAXIL [Concomitant]
  15. EPHEDRINE SUL CAP [Concomitant]
     Dosage: UNK
  16. XANAX [Concomitant]
     Dosage: UNK
  17. LIPITOR [Concomitant]
     Dosage: UNK
  18. LASIX [Concomitant]
     Indication: FLUID RETENTION
     Dosage: 20 MG / DAILY PRN
  19. PIROXICAM [Concomitant]
     Indication: ARTHRALGIA
     Dosage: 20  MG  / DAILY
  20. PAROXETINE HCL [Concomitant]
     Indication: MOOD ALTERED
     Dosage: UNK5 MG / DAILY
  21. ASPIRIN [Concomitant]
     Indication: ANTICOAGULATION DRUG LEVEL
     Dosage: 325 MG / DAILY
  22. TOPROL-XL [Concomitant]
     Indication: HYPERTENSION
     Dosage: 25 MG / HS
  23. SIMVASTATIN [Concomitant]
     Indication: BLOOD CHOLESTEROL
     Dosage: 40 MG / 1-2 X DAILY
  24. REVLIMID [Concomitant]
     Indication: MULTIPLE MYELOMA
     Dosage: 10MG / 5 MG, 1X DAILY ALT EVERY 3 WKS, 1 WK OFF
  25. DESONIDE [Concomitant]
     Indication: SEBORRHOEIC DERMATITIS
     Dosage: UNK / DAILY
     Route: 061
  26. TESTOSTERONE [Concomitant]
     Dosage: 300 MG / MONTHLY
  27. SYNTHROID [Concomitant]
     Dosage: 0.025 / DAILY
  28. LOMOTIL [Concomitant]
     Indication: DIARRHOEA
     Dosage: 25 MG / DAILY

REACTIONS (60)
  - AORTIC STENOSIS [None]
  - AORTIC VALVE INCOMPETENCE [None]
  - ARTHRALGIA [None]
  - ATRIAL TACHYCARDIA [None]
  - BARRETT'S OESOPHAGUS [None]
  - BLOOD PRODUCT TRANSFUSION [None]
  - BONE DISORDER [None]
  - BONE LESION EXCISION [None]
  - CARDIAC MURMUR [None]
  - CATARACT OPERATION [None]
  - CHEST PAIN [None]
  - CONSTIPATION [None]
  - COUGH [None]
  - DEPRESSION [None]
  - DIARRHOEA [None]
  - DIVERTICULITIS [None]
  - DIZZINESS [None]
  - DRY SKIN [None]
  - DYSGEUSIA [None]
  - DYSPNOEA [None]
  - DYSURIA [None]
  - EXOSTOSIS [None]
  - FATIGUE [None]
  - GAIT DISTURBANCE [None]
  - GASTROOESOPHAGEAL REFLUX DISEASE [None]
  - GINGIVAL PAIN [None]
  - GINGIVAL RECESSION [None]
  - GINGIVAL ULCERATION [None]
  - HAEMORRHOIDS [None]
  - HALLUCINATION [None]
  - HYPERCHOLESTEROLAEMIA [None]
  - HYPOACUSIS [None]
  - HYPOAESTHESIA [None]
  - HYPOTHYROIDISM [None]
  - LIMB OPERATION [None]
  - LOOSE TOOTH [None]
  - MENTAL STATUS CHANGES [None]
  - MULTIPLE MYELOMA [None]
  - MYALGIA [None]
  - ORAL PAIN [None]
  - OSTEONECROSIS [None]
  - PARAESTHESIA [None]
  - PLATELET COUNT DECREASED [None]
  - REFLUX OESOPHAGITIS [None]
  - RENAL IMPAIRMENT [None]
  - SEBORRHOEIC DERMATITIS [None]
  - SINUS CONGESTION [None]
  - SOFT TISSUE INFLAMMATION [None]
  - SQUAMOUS CELL CARCINOMA OF SKIN [None]
  - STEM CELL TRANSPLANT [None]
  - SYNCOPE [None]
  - THROMBOCYTOPENIA [None]
  - THROMBOTIC THROMBOCYTOPENIC PURPURA [None]
  - TINNITUS [None]
  - TOOTHACHE [None]
  - UMBILICAL HERNIA [None]
  - UMBILICAL HERNIA REPAIR [None]
  - VENTRICULAR HYPERTROPHY [None]
  - WOUND DEHISCENCE [None]
  - X-RAY ABNORMAL [None]
